FAERS Safety Report 11790461 (Version 2)
Quarter: 2016Q4

REPORT INFORMATION
  Report Type: Spontaneous
  Country: US (occurrence: US)
  Receive Date: 20151201
  Receipt Date: 20161227
  Transmission Date: 20170206
  Serious: Yes (Other)
  Sender: FDA-Public Use
  Company Number: US-BAYER-2015-478466

PATIENT
  Age: 25 Year
  Sex: Female

DRUGS (1)
  1. MIRENA [Suspect]
     Active Substance: LEVONORGESTREL
     Dosage: 20 MCG/24HR, CONT
     Route: 015
     Dates: start: 20080415, end: 201303

REACTIONS (5)
  - Pain [None]
  - Benign intracranial hypertension [None]
  - Vision blurred [None]
  - Headache [None]
  - Injury [None]

NARRATIVE: CASE EVENT DATE: 20120926
